FAERS Safety Report 11782457 (Version 1)
Quarter: 2015Q4

REPORT INFORMATION
  Report Type: Report from Study
  Country: US (occurrence: US)
  Receive Date: 20151127
  Receipt Date: 20151127
  Transmission Date: 20160305
  Serious: Yes (Death, Hospitalization)
  Sender: FDA-Public Use
  Company Number: US-ROCHE-1666077

PATIENT
  Age: 63 Year
  Sex: Female

DRUGS (5)
  1. DOXORUBICIN HYDROCHLORIDE. [Suspect]
     Active Substance: DOXORUBICIN HYDROCHLORIDE
     Indication: INVASIVE BREAST CARCINOMA
     Dosage: OVER 15 MIN ON DAY 1 X 4 CYCLES
     Route: 042
     Dates: start: 20111108
  2. CYCLOPHOSPHAMIDE. [Suspect]
     Active Substance: CYCLOPHOSPHAMIDE
     Indication: INVASIVE BREAST CARCINOMA
     Dosage: OVER 30 MIN ON DAY 1 X 4 CYCLES
     Route: 042
     Dates: start: 20111108
  3. TRASTUZUMAB [Suspect]
     Active Substance: TRASTUZUMAB
     Dosage: OVER 30 MIN WEEKLY X 11
     Route: 042
     Dates: end: 201201
  4. TRASTUZUMAB [Suspect]
     Active Substance: TRASTUZUMAB
     Indication: INVASIVE BREAST CARCINOMA
     Dosage: OVER 90 MIN ON DAY 1 WK 1 ONLY.
     Route: 042
     Dates: start: 20111108
  5. PACLITAXEL. [Suspect]
     Active Substance: PACLITAXEL
     Indication: INVASIVE BREAST CARCINOMA
     Dosage: OVER 60 MIN, WEEKLY X 12 DOSES.
     Route: 042
     Dates: start: 20111108

REACTIONS (1)
  - Splenic infarction [Recovered/Resolved]

NARRATIVE: CASE EVENT DATE: 20120322
